FAERS Safety Report 6143689-1 (Version None)
Quarter: 2009Q2

REPORT INFORMATION
  Report Type: 
  Country: None (occurrence: None)
  Receive Date: 20090403
  Receipt Date: 20090326
  Transmission Date: 20091009
  Serious: Yes (Hospitalization)
  Sender: FDA-Public Use
  Company Number: JP-ABBOTT-09P-087-0565419-00

PATIENT
  Age: 81 Year
  Sex: Male

DRUGS (6)
  1. LEUPLIN SR FOR INJECTION 11.25 MG [Suspect]
     Indication: PROSTATE CANCER STAGE II
     Route: 058
     Dates: start: 20060628
  2. LANSOPRAZOLE [Concomitant]
     Indication: GASTRITIS
     Route: 048
  3. CASODEX [Concomitant]
     Indication: PROSTATE CANCER STAGE II
     Route: 048
     Dates: start: 20060524
  4. MAGLAX [Concomitant]
     Indication: CONSTIPATION
     Route: 048
  5. SALOBEL [Concomitant]
     Indication: HYPERURICAEMIA
     Route: 048
  6. AVISHOT [Concomitant]
     Indication: BENIGN PROSTATIC HYPERPLASIA
     Route: 048

REACTIONS (2)
  - ANGINA PECTORIS [None]
  - HOT FLUSH [None]
